FAERS Safety Report 19797791 (Version 1)
Quarter: 2021Q3

REPORT INFORMATION
  Report Type: Spontaneous
  Country: US (occurrence: US)
  Receive Date: 20210907
  Receipt Date: 20210907
  Transmission Date: 20211014
  Serious: No
  Sender: FDA-Public Use
  Company Number: US-LUPIN PHARMACEUTICALS INC.-2021-16367

PATIENT
  Age: 43 Year
  Sex: Female

DRUGS (6)
  1. PHENELZINE [Suspect]
     Active Substance: PHENELZINE
     Dosage: 45 MILLIGRAM, QD (ADMINISTERED IN TWO DIVIDED DOSES; TREATMENT DURATION OF 2 WEEKS)
     Route: 065
  2. CLOMIPRAMINE [Suspect]
     Active Substance: CLOMIPRAMINE
     Indication: OBSESSIVE-COMPULSIVE DISORDER
     Dosage: 50 MILLIGRAM
     Route: 065
  3. PHENELZINE [Suspect]
     Active Substance: PHENELZINE
     Indication: OBSESSIVE-COMPULSIVE DISORDER
     Dosage: 15 MILLIGRAM, BID
     Route: 065
  4. FLUVOXAMINE [Suspect]
     Active Substance: FLUVOXAMINE
     Indication: OBSESSIVE-COMPULSIVE DISORDER
     Dosage: 300 MILLIGRAM
     Route: 065
  5. FLUOXETINE [Suspect]
     Active Substance: FLUOXETINE HYDROCHLORIDE
     Indication: OBSESSIVE-COMPULSIVE DISORDER
     Dosage: 80 MILLIGRAM
     Route: 065
  6. CITALOPRAM [Suspect]
     Active Substance: CITALOPRAM HYDROBROMIDE
     Indication: OBSESSIVE-COMPULSIVE DISORDER
     Dosage: 40 MILLIGRAM
     Route: 065

REACTIONS (3)
  - Orthostatic hypertension [Unknown]
  - Drug resistance [Unknown]
  - Off label use [Unknown]
